FAERS Safety Report 9751231 (Version 1)
Quarter: 2013Q4

REPORT INFORMATION
  Report Type: Spontaneous
  Country: US (occurrence: US)
  Receive Date: 20131212
  Receipt Date: 20131212
  Transmission Date: 20140711
  Serious: No
  Sender: FDA-Public Use
  Company Number: US-BIOGENIDEC-2013BI100690

PATIENT
  Age: 48 Year
  Sex: Female

DRUGS (12)
  1. TECFIDERA [Suspect]
     Indication: MULTIPLE SCLEROSIS
     Route: 048
     Dates: start: 20131008
  2. ADVIL [Concomitant]
  3. ATORVASTATIN CALCIUM [Concomitant]
  4. AZOR [Concomitant]
  5. CARVEDILOL [Concomitant]
  6. GABAPENTIN [Concomitant]
  7. MAXALT [Concomitant]
  8. PROVIGIL [Concomitant]
  9. PROZAC [Concomitant]
  10. TOPAMAX [Concomitant]
  11. VESICARE [Concomitant]
  12. ZANTAC [Concomitant]

REACTIONS (1)
  - Nausea [Recovered/Resolved]
